FAERS Safety Report 12905028 (Version 1)
Quarter: 2016Q4

REPORT INFORMATION
  Report Type: Spontaneous
  Country: US (occurrence: US)
  Receive Date: 20161102
  Receipt Date: 20161102
  Transmission Date: 20170207
  Serious: No
  Sender: FDA-Public Use
  Company Number: US-ASTRAZENECA-2016SF10109

PATIENT
  Sex: Male
  Weight: 98.4 kg

DRUGS (1)
  1. BRILINTA [Suspect]
     Active Substance: TICAGRELOR
     Indication: THROMBOSIS
     Route: 048
     Dates: start: 20160921

REACTIONS (3)
  - Productive cough [Unknown]
  - Nasal congestion [Unknown]
  - Dyspnoea [Unknown]
